FAERS Safety Report 17991381 (Version 3)
Quarter: 2020Q4

REPORT INFORMATION
  Report Type: Spontaneous
  Country: DE (occurrence: DE)
  Receive Date: 20200707
  Receipt Date: 20201230
  Transmission Date: 20210113
  Serious: Yes (Other)
  Sender: FDA-Public Use
  Company Number: NVSC2020DE125872

PATIENT
  Sex: Female

DRUGS (20)
  1. VALSARTAN. [Suspect]
     Active Substance: VALSARTAN
     Indication: PRODUCT USED FOR UNKNOWN INDICATION
     Dosage: 160 MG (160 MG-320 MG), QD
     Route: 065
     Dates: start: 201509, end: 201807
  2. CHAMOMILE [Concomitant]
     Active Substance: CHAMOMILE
     Indication: PRODUCT USED FOR UNKNOWN INDICATION
     Dosage: UNK (MOUTH AND THROAT SPRAY)
     Route: 065
  3. ATORVASTATIN [Concomitant]
     Active Substance: ATORVASTATIN
     Indication: PRODUCT USED FOR UNKNOWN INDICATION
     Dosage: 1 DF, QD (1-0-0)
     Route: 065
  4. METFORMINE HCL [Concomitant]
     Active Substance: METFORMIN HYDROCHLORIDE
     Indication: PRODUCT USED FOR UNKNOWN INDICATION
     Dosage: 1000 MG
     Route: 065
     Dates: start: 201801
  5. ASPIRIN. [Concomitant]
     Active Substance: ASPIRIN
     Indication: PRODUCT USED FOR UNKNOWN INDICATION
     Dosage: UNK
     Route: 065
  6. VIGANTOLETTEN [Concomitant]
     Active Substance: CHOLECALCIFEROL
     Indication: PRODUCT USED FOR UNKNOWN INDICATION
     Dosage: UNK, QD (1-0-0) (1000 IE)
     Route: 065
  7. INFLUVAC [Concomitant]
     Active Substance: INFLUENZA VIRUS VACCINE TRIVALENT TYPE A+B
     Dosage: 1 DF, UNKNOWN
     Route: 065
     Dates: start: 2019
  8. VALSARTAN 1A PHARMA [Suspect]
     Active Substance: VALSARTAN
     Indication: PRODUCT USED FOR UNKNOWN INDICATION
     Dosage: 160 MG, QD (1-0-0)
     Route: 065
     Dates: start: 20150908
  9. HYLO-CARE (HYALURONATE SODIUM) [Concomitant]
     Indication: PRODUCT USED FOR UNKNOWN INDICATION
     Dosage: UNK
     Route: 065
     Dates: start: 201609
  10. HYLO GEL [Concomitant]
     Indication: PRODUCT USED FOR UNKNOWN INDICATION
     Dosage: UNK, IN CASE OF INFECTIONS
     Route: 065
     Dates: start: 201802
  11. CIRCADIN [Concomitant]
     Active Substance: MELATONIN
     Indication: PRODUCT USED FOR UNKNOWN INDICATION
     Dosage: 2 MG (30 UNITS WERE DISPENSED INSTEAD OF 21)
     Route: 065
  12. ACC AKUT [Concomitant]
     Active Substance: ACETYLCYSTEINE
     Indication: PRODUCTIVE COUGH
     Dosage: 600 MG
     Route: 065
  13. KAMILLOSAN MUNDSPRAY [Concomitant]
     Indication: PRODUCT USED FOR UNKNOWN INDICATION
     Dosage: UNK
     Route: 065
  14. INFLUVAC [Concomitant]
     Active Substance: INFLUENZA VIRUS VACCINE TRIVALENT TYPE A+B
     Indication: PRODUCT USED FOR UNKNOWN INDICATION
     Dosage: 1 DF, UNKNOWN
     Route: 065
     Dates: start: 2018
  15. ASS RATIOPHARM [Concomitant]
     Active Substance: ASPIRIN
     Indication: PRODUCT USED FOR UNKNOWN INDICATION
     Dosage: 100 MG
     Route: 065
     Dates: start: 201704
  16. VALSACOR [Concomitant]
     Active Substance: VALSARTAN
     Indication: PRODUCT USED FOR UNKNOWN INDICATION
     Dosage: 320 MG, QD (1-0-0)
     Route: 065
     Dates: start: 20180720, end: 201906
  17. METFOGAMMA [Concomitant]
     Active Substance: METFORMIN HYDROCHLORIDE
     Dosage: 1000 MG, BID (1/2-0-1)
     Route: 065
  18. VALSARTAN 1A PHARMA [Suspect]
     Active Substance: VALSARTAN
     Dosage: 320 MG, QD (1-0-0)
     Route: 065
     Dates: start: 20170321, end: 201807
  19. VIGANTOL [Concomitant]
     Indication: PRODUCT USED FOR UNKNOWN INDICATION
     Dosage: 1000 IU
     Route: 065
     Dates: start: 201807
  20. METFOGAMMA [Concomitant]
     Active Substance: METFORMIN HYDROCHLORIDE
     Indication: PRODUCT USED FOR UNKNOWN INDICATION
     Dosage: 1000 MG, BID (1-0-1)
     Route: 065

REACTIONS (10)
  - Aortic stenosis [Unknown]
  - Emotional distress [Not Recovered/Not Resolved]
  - Fear of disease [Not Recovered/Not Resolved]
  - Respiratory tract infection [Unknown]
  - Cardiovascular disorder [Unknown]
  - Poor quality product administered [Unknown]
  - Diabetes mellitus [Unknown]
  - Breast calcifications [Not Recovered/Not Resolved]
  - Post-traumatic stress disorder [Not Recovered/Not Resolved]
  - Product contamination [Unknown]

NARRATIVE: CASE EVENT DATE: 2016
